FAERS Safety Report 8497752-0 (Version None)
Quarter: 2012Q3

REPORT INFORMATION
  Report Type: 
  Country: None (occurrence: None)
  Receive Date: 20120709
  Receipt Date: 20120605
  Transmission Date: 20120928
  Serious: Yes (Hospitalization)
  Sender: FDA-Public Use
  Company Number: IL-GILEAD-2012-0056141

PATIENT
  Sex: Male

DRUGS (10)
  1. LANTON [Concomitant]
     Indication: GASTRITIS PROPHYLAXIS
     Dosage: UNK
     Dates: start: 20050101, end: 20120503
  2. HEPARIN [Concomitant]
     Indication: CATHETERISATION CARDIAC
     Dosage: UNK
     Dates: start: 20120503, end: 20120503
  3. PLAVIX [Concomitant]
     Indication: ISCHAEMIC HEART DISEASE PROPHYLAXIS
     Dosage: UNK
     Dates: start: 20100101
  4. RANOLAZINE [Suspect]
     Indication: ANGINA PECTORIS
     Dosage: 1000 MG, BID
     Dates: start: 20120515, end: 20120601
  5. BISOPROLOL FUMARATE [Suspect]
     Indication: MYOCARDIAL ISCHAEMIA
     Dosage: UNK
     Dates: start: 20120509, end: 20120602
  6. LIPITOR [Concomitant]
     Indication: HYPERLIPIDAEMIA
     Dosage: UNK
     Dates: start: 20120505
  7. ASPIRIN [Concomitant]
     Indication: MYOCARDIAL ISCHAEMIA
     Dosage: UNK
     Dates: start: 20120503, end: 20120504
  8. OMEPRADEX [Concomitant]
     Indication: GASTRITIS PROPHYLAXIS
     Dosage: UNK
     Dates: start: 20120504
  9. AMLODIPINE [Concomitant]
     Indication: ANGINA PECTORIS
     Dosage: UNK
     Dates: start: 20120504, end: 20120504
  10. SIMVASTATIN [Concomitant]
     Indication: HYPERLIPIDAEMIA
     Dosage: UNK
     Dates: start: 20050101, end: 20120503

REACTIONS (1)
  - SYNCOPE [None]
